FAERS Safety Report 4865670-2 (Version None)
Quarter: 2005Q4

REPORT INFORMATION
  Report Type: 
  Country: None (occurrence: None)
  Receive Date: 20051220
  Receipt Date: 20051207
  Transmission Date: 20060501
  Serious: Yes (Hospitalization)
  Sender: FDA-Public Use
  Company Number: 219578

PATIENT
  Age: 55 Year
  Sex: Female
  Weight: 58 kg

DRUGS (7)
  1. AVASTIN [Suspect]
     Indication: PANCREATIC CARCINOMA
     Dosage: 583 MG, X2, INTRAVENOUS
     Route: 042
     Dates: start: 20051103, end: 20051103
  2. DOCETAXEL (DOCETAXEL) [Suspect]
     Indication: PANCREATIC CARCINOMA
     Dosage: 56.7 MG, X3, INTRAVENOUS
     Route: 042
     Dates: start: 20051103, end: 20051110
  3. OXYCONTIN [Concomitant]
  4. CELEBREX [Concomitant]
  5. ALDACTONE [Concomitant]
  6. ESTRADIOL [Concomitant]
  7. OXYCODONE (OXYCODONE) [Concomitant]

REACTIONS (6)
  - FEBRILE NEUTROPENIA [None]
  - HAEMATOCRIT DECREASED [None]
  - HAEMOGLOBIN DECREASED [None]
  - MUCOSAL INFLAMMATION [None]
  - PH URINE INCREASED [None]
  - URINE KETONE BODY [None]
